FAERS Safety Report 4623759-7 (Version None)
Quarter: 2005Q1

REPORT INFORMATION
  Report Type: 
  Country: None (occurrence: None)
  Receive Date: 20050331
  Receipt Date: 20050322
  Transmission Date: 20050727
  Serious: Yes (Hospitalization, Other)
  Sender: FDA-Public Use
  Company Number: US-JNJFOC-20050200192

PATIENT
  Age: 74 Year
  Sex: Female
  Weight: 80.74 kg

DRUGS (1)
  1. RISPERDAL CONSTA [Suspect]
     Indication: BIPOLAR DISORDER
     Route: 030

REACTIONS (4)
  - CONVERSION DISORDER [None]
  - HYPERGLYCAEMIA [None]
  - RESPIRATORY DEPRESSION [None]
  - TACHYCARDIA [None]
